FAERS Safety Report 17394627 (Version 1)
Quarter: 2020Q1

REPORT INFORMATION
  Report Type: Spontaneous
  Country: CA (occurrence: CA)
  Receive Date: 20200210
  Receipt Date: 20200210
  Transmission Date: 20200409
  Serious: Yes (Other)
  Sender: FDA-Public Use
  Company Number: CA-TEVA-2020-CA-1181863

PATIENT
  Age: 37 Year
  Sex: Male

DRUGS (4)
  1. LEFLUNOMIDE. [Suspect]
     Active Substance: LEFLUNOMIDE
     Dosage: 100 MILLIGRAM DAILY;
     Route: 048
  2. LEFLUNOMIDE. [Suspect]
     Active Substance: LEFLUNOMIDE
     Indication: TRICHODYSPLASIA SPINULOSA
     Dosage: 20 MILLIGRAM DAILY;
     Route: 048
  3. CICLOSPORIN [Suspect]
     Active Substance: CYCLOSPORINE
     Indication: IMMUNOSUPPRESSANT DRUG THERAPY
     Dosage: 100 MILLIGRAM DAILY;
     Route: 048
  4. LEFLUNOMIDE. [Suspect]
     Active Substance: LEFLUNOMIDE
     Dosage: 40 MILLIGRAM DAILY;
     Route: 048

REACTIONS (9)
  - Alopecia [Recovered/Resolved]
  - Hyperkeratosis [Recovered/Resolved]
  - Trichodysplasia spinulosa [Recovered/Resolved]
  - Therapeutic response unexpected [Recovered/Resolved]
  - Human polyomavirus infection [Recovered/Resolved]
  - Liver function test abnormal [Recovered/Resolved]
  - Off label use [Recovered/Resolved]
  - Papule [Recovered/Resolved]
  - Rash [Recovered/Resolved]
